FAERS Safety Report 23202878 (Version 1)
Quarter: 2023Q4

REPORT INFORMATION
  Report Type: Spontaneous
  Country: US (occurrence: US)
  Receive Date: 20231120
  Receipt Date: 20231120
  Transmission Date: 20240110
  Serious: No
  Sender: FDA-Public Use
  Company Number: US-SANOFI-01839513

PATIENT
  Sex: Female

DRUGS (1)
  1. LANTUS SOLOSTAR [Suspect]
     Active Substance: INSULIN GLARGINE
     Indication: Type 2 diabetes mellitus
     Dosage: USES FROM 20 TO 25 TO 30 UNITS SLIDING SCALE TID AND DRUG TREATMENT DURATION:1 ATTEMPTED USE PER PEN

REACTIONS (2)
  - Blood glucose abnormal [Unknown]
  - Intentional product misuse [Unknown]
